FAERS Safety Report 5602455-3 (Version None)
Quarter: 2008Q1

REPORT INFORMATION
  Report Type: 
  Country: None (occurrence: None)
  Receive Date: 20080125
  Receipt Date: 20080125
  Transmission Date: 20080703
  Serious: Yes (Other)
  Sender: FDA-Public Use
  Company Number: A0705421A

PATIENT
  Age: 58 Year
  Sex: Female
  Weight: 91.8 kg

DRUGS (4)
  1. ALLI [Suspect]
     Route: 048
     Dates: start: 20080111, end: 20080123
  2. PHENTERMINE [Concomitant]
     Dates: start: 20070101, end: 20080110
  3. STOOL SOFTENER [Concomitant]
  4. MIRALAX [Concomitant]

REACTIONS (8)
  - ABDOMINAL PAIN UPPER [None]
  - DEPRESSION [None]
  - DIARRHOEA [None]
  - FREQUENT BOWEL MOVEMENTS [None]
  - NAUSEA [None]
  - PROCTALGIA [None]
  - RECTAL HAEMORRHAGE [None]
  - THERAPEUTIC RESPONSE UNEXPECTED [None]
